FAERS Safety Report 9197722 (Version 1)
Quarter: 2013Q1

REPORT INFORMATION
  Report Type: Spontaneous
  Country: US (occurrence: US)
  Receive Date: 20130328
  Receipt Date: 20130328
  Transmission Date: 20140127
  Serious: Yes (Other)
  Sender: FDA-Public Use
  Company Number: US-BAYER-2013-035756

PATIENT
  Age: 46 Year
  Sex: Female
  Weight: 78.46 kg

DRUGS (7)
  1. YAZ [Suspect]
     Indication: METRORRHAGIA
  2. SKELAXIN [Concomitant]
     Dosage: 800 MG, 0.50 TABS 3 TIMES A DAY
     Route: 048
  3. NYSTATIN W/TRIAMCINOLONE [NYSTATIN,TRIAMCINOLONE] [Concomitant]
     Dosage: 1 APPLICATIN 2 TIMES A DAY
     Route: 061
  4. TRAZODONE [Concomitant]
     Dosage: 50 MG, 1 TABLET AT BEDTIME
     Route: 048
  5. CELEXA [Concomitant]
     Dosage: 40 MG, 0.50 DAILY
     Route: 048
  6. BUPROPION SR [Concomitant]
     Dosage: 150 MG, 1 TABLET DAILY
     Route: 048
  7. NAPROXEN [Concomitant]
     Dosage: 500 MG, 1 A DAY
     Route: 048

REACTIONS (1)
  - Thrombophlebitis superficial [None]
